FAERS Safety Report 5955772-1 (Version None)
Quarter: 2008Q4

REPORT INFORMATION
  Report Type: 
  Country: None (occurrence: None)
  Receive Date: 20081117
  Receipt Date: 20081111
  Transmission Date: 20090506
  Serious: Yes (Hospitalization)
  Sender: FDA-Public Use
  Company Number: US-B.I. PHARMACEUTICALS,INC./RIDGEFIELD-2005-BP-15029BP

PATIENT
  Sex: Female

DRUGS (8)
  1. SPIRIVA [Suspect]
     Indication: CHRONIC OBSTRUCTIVE PULMONARY DISEASE
     Dosage: 18MCG
     Route: 055
     Dates: start: 20041210, end: 20050228
  2. SPIRIVA [Suspect]
     Indication: EMPHYSEMA
  3. SPIRIVA [Suspect]
     Indication: BRONCHITIS CHRONIC
  4. SPIRIVA [Suspect]
     Indication: DYSPNOEA
  5. ALBUTEROL W/IPRATROPIUM [Concomitant]
     Indication: DYSPNOEA
     Route: 055
  6. ADVAIR DISKUS 100/50 [Concomitant]
     Indication: DYSPNOEA
  7. ATROVENT [Concomitant]
     Indication: DYSPNOEA
  8. COMBIVENT [Concomitant]
     Route: 055

REACTIONS (2)
  - DRUG INTOLERANCE [None]
  - EMPHYSEMA [None]
